FAERS Safety Report 24939813 (Version 1)
Quarter: 2025Q1

REPORT INFORMATION
  Report Type: Spontaneous
  Country: GB (occurrence: GB)
  Receive Date: 20250207
  Receipt Date: 20250207
  Transmission Date: 20250408
  Serious: Yes (Other)
  Sender: INTERCEPT PHARMACEUTICALS
  Company Number: GB-ADVANZ PHARMA-202501000652

PATIENT
  Age: 26 Year
  Sex: Female

DRUGS (4)
  1. OCALIVA [Suspect]
     Active Substance: OBETICHOLIC ACID
     Indication: Primary biliary cholangitis
     Dates: start: 202212
  2. OCALIVA [Suspect]
     Active Substance: OBETICHOLIC ACID
     Dates: start: 202305, end: 202411
  3. URSODIOL [Concomitant]
     Active Substance: URSODIOL
     Indication: Primary biliary cholangitis
  4. URSODIOL [Concomitant]
     Active Substance: URSODIOL

REACTIONS (6)
  - Sjogren^s syndrome [Unknown]
  - Alanine aminotransferase abnormal [Unknown]
  - Liver function test increased [Not Recovered/Not Resolved]
  - Blood alkaline phosphatase increased [Unknown]
  - Arthralgia [Not Recovered/Not Resolved]
  - Drug ineffective [Unknown]

NARRATIVE: CASE EVENT DATE: 20230101
